FAERS Safety Report 4926206-0 (Version None)
Quarter: 2006Q1

REPORT INFORMATION
  Report Type: 
  Country: None (occurrence: None)
  Receive Date: 20060228
  Receipt Date: 20051206
  Transmission Date: 20060701
  Serious: Yes (Hospitalization)
  Sender: FDA-Public Use
  Company Number: US-GLAXOSMITHKLINE-A0585170A

PATIENT
  Age: 46 Year
  Sex: Female

DRUGS (1)
  1. LAMICTAL [Suspect]
     Indication: BIPOLAR DISORDER
     Dosage: 25MG UNKNOWN
     Route: 048

REACTIONS (1)
  - PYREXIA [None]
